FAERS Safety Report 7230299-8 (Version None)
Quarter: 2011Q1

REPORT INFORMATION
  Report Type: 
  Country: None (occurrence: None)
  Receive Date: 20110118
  Receipt Date: 20110114
  Transmission Date: 20110831
  Serious: Yes (Other)
  Sender: FDA-Public Use
  Company Number: US-PFIZER INC-2011009304

PATIENT
  Sex: Female
  Weight: 108.8 kg

DRUGS (12)
  1. POTASSIUM [Concomitant]
     Dosage: 20 MG, UNK
  2. TIKOSYN [Suspect]
     Indication: ATRIAL FIBRILLATION
     Dosage: 0.25 MG, 2X/DAY
     Route: 048
  3. LASIX [Suspect]
     Indication: FLUID RETENTION
  4. LISINOPRIL [Concomitant]
     Dosage: 5 MG, UNK
  5. LASIX [Suspect]
     Indication: SWELLING
     Dosage: 80 MG, DAILY
     Route: 048
     Dates: start: 20101201, end: 20110101
  6. WARFARIN [Concomitant]
     Dosage: 5 MG, UNK
  7. TYLENOL [Concomitant]
     Indication: ARTHRITIS
     Dosage: UNK
  8. SIMVASTATIN [Concomitant]
     Dosage: 80 MG, UNK
  9. LEVOTHYROXINE [Concomitant]
     Dosage: 200 MG, UNK
  10. CENTRUM SILVER [Concomitant]
     Dosage: UNK
  11. FENOFIBRATE [Concomitant]
     Dosage: 160 MG, UNK
  12. ATENOLOL [Concomitant]
     Dosage: 100 MG, UNK

REACTIONS (4)
  - SWELLING [None]
  - HEART RATE INCREASED [None]
  - CHEST PAIN [None]
  - GAIT DISTURBANCE [None]
